FAERS Safety Report 4927891-X (Version None)
Quarter: 2006Q1

REPORT INFORMATION
  Report Type: 
  Country: None (occurrence: None)
  Receive Date: 20060222
  Receipt Date: 20060207
  Transmission Date: 20060701
  Serious: Yes (Death)
  Sender: FDA-Public Use
  Company Number: 2006-US-00671

PATIENT
  Age: 86 Year
  Sex: Male

DRUGS (1)
  1. CLOZAPINE [Suspect]
     Indication: SENILE DEMENTIA
     Dosage: 150 MG, QD, ORAL
     Route: 048
     Dates: start: 20050601, end: 20051201

REACTIONS (1)
  - DEATH [None]
